FAERS Safety Report 6743052-6 (Version None)
Quarter: 2010Q2

REPORT INFORMATION
  Report Type: 
  Country: None (occurrence: None)
  Receive Date: 20100527
  Receipt Date: 20100519
  Transmission Date: 20101027
  Serious: Yes (Other)
  Sender: FDA-Public Use
  Company Number: US-BAXTER-2010BH008778

PATIENT
  Sex: Female

DRUGS (20)
  1. GAMMAGARD LIQUID [Suspect]
     Indication: DRUG USE FOR UNKNOWN INDICATION
     Route: 065
     Dates: start: 20030101
  2. GAMMAGARD LIQUID [Suspect]
     Route: 065
     Dates: start: 20030101
  3. GAMMAGARD LIQUID [Suspect]
     Route: 042
     Dates: start: 20091112, end: 20091112
  4. GAMMAGARD LIQUID [Suspect]
     Route: 042
     Dates: start: 20100429, end: 20100429
  5. GAMMAGARD LIQUID [Suspect]
     Route: 042
     Dates: start: 20091210, end: 20091210
  6. GAMMAGARD LIQUID [Suspect]
     Route: 042
     Dates: start: 20100429, end: 20100429
  7. GAMMAGARD LIQUID [Suspect]
     Route: 042
     Dates: start: 20100106, end: 20100106
  8. GAMMAGARD LIQUID [Suspect]
     Route: 042
     Dates: start: 20100429, end: 20100429
  9. GAMMAGARD LIQUID [Suspect]
     Route: 042
     Dates: start: 20091112, end: 20091112
  10. GAMMAGARD LIQUID [Suspect]
     Route: 042
     Dates: start: 20091112, end: 20091112
  11. GAMMAGARD LIQUID [Suspect]
     Route: 042
     Dates: start: 20091210, end: 20091210
  12. GAMMAGARD LIQUID [Suspect]
     Route: 042
     Dates: start: 20091210, end: 20091210
  13. GAMMAGARD LIQUID [Suspect]
     Route: 042
     Dates: start: 20100106, end: 20100106
  14. GAMMAGARD LIQUID [Suspect]
     Route: 042
     Dates: start: 20100106, end: 20100106
  15. GAMMAGARD LIQUID [Suspect]
     Route: 042
     Dates: start: 20100401, end: 20100401
  16. GAMMAGARD LIQUID [Suspect]
     Route: 042
     Dates: start: 20100401, end: 20100401
  17. GAMMAGARD LIQUID [Suspect]
     Route: 042
     Dates: start: 20100401, end: 20100401
  18. FLEBOGAMMA [Suspect]
     Indication: DRUG USE FOR UNKNOWN INDICATION
     Route: 042
     Dates: start: 20100204, end: 20100304
  19. FLEBOGAMMA [Suspect]
     Route: 042
     Dates: start: 20100204, end: 20100304
  20. FLEBOGAMMA [Suspect]
     Route: 042
     Dates: start: 20100204, end: 20100304

REACTIONS (1)
  - HEPATITIS B [None]
